FAERS Safety Report 8147997-4 (Version None)
Quarter: 2012Q1

REPORT INFORMATION
  Report Type: 
  Country: None (occurrence: None)
  Receive Date: 20120218
  Receipt Date: 20110406
  Transmission Date: 20120608
  Serious: No
  Sender: FDA-Public Use
  Company Number: US-ALLERGAN-1104878US

PATIENT
  Age: 35 Year

DRUGS (1)
  1. BOTULINUM TOXIN TYPE A [Suspect]
     Indication: MUSCLE SPASTICITY
     Dosage: 20 UNITS, SINGLE
     Dates: start: 20110301, end: 20110301

REACTIONS (2)
  - MUSCULOSKELETAL DISCOMFORT [None]
  - ARTHRALGIA [None]
